FAERS Safety Report 6372995-0 (Version None)
Quarter: 2009Q3

REPORT INFORMATION
  Report Type: 
  Country: None (occurrence: None)
  Receive Date: 20090924
  Receipt Date: 20081230
  Transmission Date: 20100115
  Serious: No
  Sender: FDA-Public Use
  Company Number: US-ASTRAZENECA-2008UW28925

PATIENT
  Age: 37 Year
  Sex: Female
  Weight: 56.7 kg

DRUGS (4)
  1. SEROQUEL [Suspect]
     Indication: AFFECTIVE DISORDER
     Dosage: 12.5 MG
     Route: 048
     Dates: start: 20081216
  2. SEROQUEL [Suspect]
     Indication: SLEEP DISORDER
     Dosage: 12.5 MG
     Route: 048
     Dates: start: 20081216
  3. CELEXA [Concomitant]
  4. ATENOLOL [Concomitant]

REACTIONS (2)
  - ABNORMAL DREAMS [None]
  - ILL-DEFINED DISORDER [None]
